FAERS Safety Report 16957985 (Version 2)
Quarter: 2019Q4

REPORT INFORMATION
  Report Type: Spontaneous
  Country: US (occurrence: US)
  Receive Date: 20191024
  Receipt Date: 20191205
  Transmission Date: 20200122
  Serious: No
  Sender: FDA-Public Use
  Company Number: US-BIOGEN-2019BI00794796

PATIENT
  Sex: Female

DRUGS (1)
  1. TECFIDERA [Suspect]
     Active Substance: DIMETHYL FUMARATE
     Indication: MULTIPLE SCLEROSIS
     Dosage: MAINTENANCE DOSE
     Route: 048
     Dates: start: 20190920

REACTIONS (6)
  - Flushing [Recovered/Resolved]
  - Headache [Unknown]
  - Memory impairment [Unknown]
  - Dizziness [Unknown]
  - Pain in extremity [Unknown]
  - Palpitations [Unknown]
